FAERS Safety Report 7193315-8 (Version None)
Quarter: 2010Q4

REPORT INFORMATION
  Report Type: 
  Country: None (occurrence: None)
  Receive Date: 20101223
  Receipt Date: 20100902
  Transmission Date: 20110411
  Serious: No
  Sender: FDA-Public Use
  Company Number: US-AMGEN-TCS431769

PATIENT

DRUGS (5)
  1. ENBREL [Suspect]
     Indication: RHEUMATOID ARTHRITIS
     Dosage: 50 MG, QWK
     Route: 058
     Dates: start: 20100723
  2. METHOTREXATE [Concomitant]
     Indication: RHEUMATOID ARTHRITIS
     Dosage: 2.5 MG, QD
     Route: 048
     Dates: start: 20090501
  3. FOLIC ACID [Concomitant]
     Dosage: 1 MG, QD
     Route: 048
     Dates: start: 20100501
  4. LOVASTATIN [Concomitant]
     Dosage: 40 MG, QD
     Route: 048
  5. QUINAPRIL [Concomitant]
     Dosage: 20 MG, QD
     Route: 048

REACTIONS (1)
  - TOOTH FRACTURE [None]
